FAERS Safety Report 4371006-6 (Version None)
Quarter: 2004Q2

REPORT INFORMATION
  Report Type: 
  Country: None (occurrence: None)
  Receive Date: 20040526
  Receipt Date: 20040519
  Transmission Date: 20050107
  Serious: Yes (Hospitalization)
  Sender: FDA-Public Use
  Company Number: WAES 0405USA01421

PATIENT
  Age: 63 Year
  Sex: Male

DRUGS (8)
  1. DECADRON [Suspect]
     Indication: NON-SMALL CELL LUNG CANCER STAGE IV
     Dosage: PO
     Route: 048
     Dates: start: 20031201, end: 20040219
  2. BLINDED THERAPY UNK [Suspect]
     Dates: start: 20040219, end: 20040401
  3. TAXOL [Suspect]
     Indication: NON-SMALL CELL LUNG CANCER STAGE IV
     Dates: start: 20031201, end: 20040219
  4. CARBOPLATIN [Suspect]
     Indication: NON-SMALL CELL LUNG CANCER STAGE IV
     Dates: start: 20031201, end: 20040219
  5. COMBIVENT [Concomitant]
  6. ALBUTEROL [Concomitant]
  7. OXYCODONE [Concomitant]
  8. RADIOGRAPHIC CONTRAST MEDIUM [Concomitant]

REACTIONS (10)
  - CONDITION AGGRAVATED [None]
  - DYSPHAGIA [None]
  - DYSPNOEA [None]
  - HAEMATURIA [None]
  - LYMPHADENOPATHY [None]
  - MARKEDLY REDUCED DIETARY INTAKE [None]
  - NON-SMALL CELL LUNG CANCER METASTATIC [None]
  - PROTEINURIA [None]
  - RENAL CYST [None]
  - RENAL FAILURE ACUTE [None]
